FAERS Safety Report 4582123-X (Version None)
Quarter: 2005Q1

REPORT INFORMATION
  Report Type: 
  Country: None (occurrence: None)
  Receive Date: 20050119
  Receipt Date: 20040224
  Transmission Date: 20050727
  Serious: Yes (Other)
  Sender: FDA-Public Use
  Company Number: A03200400574

PATIENT
  Age: 57 Year
  Sex: Female
  Weight: 53.5244 kg

DRUGS (8)
  1. PLAVIX [Suspect]
     Indication: TRANSIENT ISCHAEMIC ATTACK
     Dosage: 75 MG QD - ORAL
     Route: 048
     Dates: start: 20030601, end: 20040101
  2. BENAZEPRIL HCL [Concomitant]
  3. ATENOLOL [Concomitant]
  4. VALACYCLOVIR HCL [Concomitant]
  5. LORATADINE [Concomitant]
  6. VITAMIN E [Concomitant]
  7. VITAMIN C [Concomitant]
  8. CALCIUM GLUCONATE [Concomitant]

REACTIONS (1)
  - CYST [None]
